FAERS Safety Report 12669893 (Version 1)
Quarter: 2016Q3

REPORT INFORMATION
  Report Type: Other
  Country: GB (occurrence: SA)
  Receive Date: 20160820
  Receipt Date: 20160820
  Transmission Date: 20161109
  Serious: Yes (Life-Threatening, Hospitalization)
  Sender: FDA-Public Use
  Company Number: SA-CLARIS PHARMASERVICES-1056552

PATIENT
  Age: 50 Year
  Sex: Female
  Weight: 104 kg

DRUGS (13)
  1. FENTANYL. [Concomitant]
     Active Substance: FENTANYL
  2. DEXAMETHASONE. [Concomitant]
     Active Substance: DEXAMETHASONE
  3. ACETAMINOPHEN. [Concomitant]
     Active Substance: ACETAMINOPHEN
  4. PROPRANOLOL [Concomitant]
     Active Substance: PROPRANOLOL\PROPRANOLOL HYDROCHLORIDE
  5. MIDAZOLAM [Concomitant]
     Active Substance: MIDAZOLAM\MIDAZOLAM HYDROCHLORIDE
  6. NITROUS OXIDE. [Concomitant]
     Active Substance: NITROUS OXIDE
  7. SULPIRIDE [Concomitant]
     Active Substance: SULPIRIDE
  8. SEVOFLURANE. [Concomitant]
     Active Substance: SEVOFLURANE
  9. GRANISETRON HYDROCHLORIDE. [Suspect]
     Active Substance: GRANISETRON HYDROCHLORIDE
     Indication: PROPHYLAXIS OF NAUSEA AND VOMITING
     Route: 042
  10. MORPHINE [Concomitant]
     Active Substance: MORPHINE
  11. PROPOFOL. [Concomitant]
     Active Substance: PROPOFOL
  12. ROCURONIUM [Concomitant]
     Active Substance: ROCURONIUM BROMIDE
  13. OXYGEN. [Concomitant]
     Active Substance: OXYGEN

REACTIONS (1)
  - Cardiac arrest [Recovered/Resolved]
